FAERS Safety Report 16474073 (Version 1)
Quarter: 2019Q2

REPORT INFORMATION
  Report Type: Spontaneous
  Country: US (occurrence: US)
  Receive Date: 20190625
  Receipt Date: 20190625
  Transmission Date: 20190711
  Serious: No
  Sender: FDA-Public Use
  Company Number: US-PFIZER INC-2019236855

PATIENT
  Age: 80 Year
  Sex: Female
  Weight: 55 kg

DRUGS (1)
  1. LYRICA [Suspect]
     Active Substance: PREGABALIN
     Dosage: 50 MG, 1X/DAY (ONCE A DAY BEFORE BED)
     Route: 048

REACTIONS (6)
  - Withdrawal syndrome [Unknown]
  - Crying [Unknown]
  - Off label use [Unknown]
  - Insomnia [Unknown]
  - Product use issue [Unknown]
  - Pain [Unknown]
